FAERS Safety Report 5343926-7 (Version None)
Quarter: 2007Q2

REPORT INFORMATION
  Report Type: 
  Country: None (occurrence: None)
  Receive Date: 20070604
  Receipt Date: 20070601
  Transmission Date: 20071010
  Serious: Yes (Hospitalization)
  Sender: FDA-Public Use
  Company Number: IT-BRISTOL-MYERS SQUIBB COMPANY-13799960

PATIENT
  Sex: Male

DRUGS (5)
  1. CISPLATIN [Suspect]
     Indication: GASTRIC CANCER
     Dates: start: 20051004, end: 20051004
  2. IRINOTECAN HCL [Suspect]
     Indication: GASTRIC CANCER
  3. FLUOROURACIL [Suspect]
     Indication: GASTRIC CANCER
  4. FOLINIC ACID [Suspect]
     Indication: GASTRIC CANCER
  5. TAXOTERE [Suspect]
     Indication: GASTRIC CANCER
     Dates: start: 20051004, end: 20051004

REACTIONS (1)
  - DYSPHAGIA [None]
